FAERS Safety Report 5817733-2 (Version None)
Quarter: 2008Q3

REPORT INFORMATION
  Report Type: 
  Country: None (occurrence: None)
  Receive Date: 20080722
  Receipt Date: 20080715
  Transmission Date: 20090109
  Serious: Yes (Hospitalization, Other)
  Sender: FDA-Public Use
  Company Number: PHHY2008JP12921

PATIENT
  Age: 82 Year
  Sex: Male

DRUGS (8)
  1. TEGRETOL [Suspect]
     Indication: EPILEPSY
     Dosage: 100 MG, UNK
     Route: 048
     Dates: end: 20080616
  2. RESLIN [Concomitant]
  3. LEXOTAN [Concomitant]
  4. MAGMITT [Concomitant]
  5. BUBURONE [Concomitant]
  6. TOWARAT L [Concomitant]
  7. FURSULTIAMINE B6 B12 [Concomitant]
  8. MARZULENE [Concomitant]

REACTIONS (7)
  - DIZZINESS [None]
  - DYSPNOEA [None]
  - HYPOAESTHESIA [None]
  - MUSCULOSKELETAL STIFFNESS [None]
  - PAIN [None]
  - PLEURAL EFFUSION [None]
  - THORACIC CAVITY DRAINAGE [None]
